FAERS Safety Report 8844585 (Version 1)
Quarter: 2012Q4

REPORT INFORMATION
  Report Type: Spontaneous
  Country: US (occurrence: None)
  Receive Date: 20121015
  Receipt Date: 20121015
  Transmission Date: 20130627
  Serious: No
  Sender: FDA-Public Use
  Company Number: DKLU1077681

PATIENT
  Sex: Female

DRUGS (2)
  1. PANHEMATIN [Suspect]
     Indication: PORPHYRIA ACUTE
     Dosage: 2 WEEKS AGO
  2. DEXTROSE SALINE [Concomitant]

REACTIONS (4)
  - Fatigue [None]
  - Pain [None]
  - Asthenia [None]
  - Nausea [None]
